FAERS Safety Report 15981663 (Version 1)
Quarter: 2019Q1

REPORT INFORMATION
  Report Type: Spontaneous
  Country: SA (occurrence: SA)
  Receive Date: 20190219
  Receipt Date: 20190219
  Transmission Date: 20190418
  Serious: Yes (Other)
  Sender: FDA-Public Use
  Company Number: None

PATIENT

DRUGS (1)
  1. MITOMYCIN. [Suspect]
     Active Substance: MITOMYCIN

REACTIONS (4)
  - Lung consolidation [None]
  - Pneumonitis [None]
  - Respiratory distress [None]
  - Pulmonary fibrosis [None]
